FAERS Safety Report 5671819-4 (Version None)
Quarter: 2008Q1

REPORT INFORMATION
  Report Type: 
  Country: None (occurrence: None)
  Receive Date: 20080314
  Receipt Date: 20080304
  Transmission Date: 20080703
  Serious: Yes (Hospitalization)
  Sender: FDA-Public Use
  Company Number: 2007BI022707

PATIENT
  Age: 50 Year
  Sex: Female

DRUGS (4)
  1. AVONEX [Suspect]
     Indication: MULTIPLE SCLEROSIS
     Dosage: 30 UG; QW; IM
     Route: 030
     Dates: start: 20070101
  2. ZOLOFT [Concomitant]
  3. TRAZODONE HCL [Concomitant]
  4. FERROUS SULFATE TAB [Concomitant]

REACTIONS (6)
  - CARDIAC DISORDER [None]
  - HYDRONEPHROSIS [None]
  - LIVER FUNCTION TEST ABNORMAL [None]
  - PYELONEPHRITIS [None]
  - SEPSIS [None]
  - URINARY TRACT INFECTION [None]
